FAERS Safety Report 7229555-9 (Version None)
Quarter: 2011Q1

REPORT INFORMATION
  Report Type: 
  Country: None (occurrence: None)
  Receive Date: 20110117
  Receipt Date: 20100624
  Transmission Date: 20110831
  Serious: No
  Sender: FDA-Public Use
  Company Number: US-TYCO HEALTHCARE/MALLINCKRODT-T201001508

PATIENT
  Sex: Female

DRUGS (3)
  1. PREDNISONE [Concomitant]
     Dosage: 40 MG AT 12 HOURS PRIOR
  2. PREDNISONE [Concomitant]
     Dosage: 40 MG AT 2 HOURS PRIOR
     Dates: start: 20100622, end: 20100622
  3. OPTIRAY 350 [Suspect]
     Indication: COMPUTERISED TOMOGRAM
     Dosage: 100 ML, SINGLE
     Route: 042
     Dates: start: 20100622, end: 20100622

REACTIONS (2)
  - EYE PRURITUS [None]
  - URTICARIA [None]
